FAERS Safety Report 12256290 (Version 1)
Quarter: 2016Q2

REPORT INFORMATION
  Report Type: Spontaneous
  Country: DE (occurrence: DE)
  Receive Date: 20160412
  Receipt Date: 20160412
  Transmission Date: 20160815
  Serious: Yes (Other)
  Sender: FDA-Public Use
  Company Number: GXKR2016DE001789

PATIENT
  Age: 75 Year
  Sex: Female

DRUGS (4)
  1. EBRANTIL [Suspect]
     Active Substance: URAPIDIL
     Indication: PRODUCT USED FOR UNKNOWN INDICATION
     Dosage: 1 DF, BID
     Route: 065
  2. DYTIDE [Suspect]
     Active Substance: BENZTHIAZIDE\TRIAMTERENE
     Indication: PRODUCT USED FOR UNKNOWN INDICATION
     Dosage: UNK UKN, UNK
     Route: 065
  3. MARCUMAR [Concomitant]
     Active Substance: PHENPROCOUMON
     Indication: PRODUCT USED FOR UNKNOWN INDICATION
     Dosage: UNK UKN, UNK
     Route: 065
  4. CARVEDILOL 1A PHARMA [Suspect]
     Active Substance: CARVEDILOL
     Indication: HYPERTENSION
     Dosage: 12.05 MG, BID
     Route: 048
     Dates: start: 201602

REACTIONS (4)
  - Dizziness [Unknown]
  - Vision blurred [Unknown]
  - Breast haemorrhage [Unknown]
  - Weight increased [Unknown]
